FAERS Safety Report 14938864 (Version 4)
Quarter: 2018Q2

REPORT INFORMATION
  Report Type: Report from Study
  Country: None (occurrence: TR)
  Receive Date: 20180525
  Receipt Date: 20180613
  Transmission Date: 20180711
  Serious: Yes (Hospitalization)
  Sender: FDA-Public Use
  Company Number: TR-ABBVIE-18K-161-2366743-00

PATIENT
  Age: 58 Year
  Sex: Male
  Weight: 75 kg

DRUGS (4)
  1. DUODOPA [Suspect]
     Active Substance: CARBIDOPA\LEVODOPA
     Dosage: MORNING DOSE (ML): 6.70?CONTINUOUS DOSE (ML): 3.40?EXTRA DOSE (ML):1.00
     Route: 050
     Dates: start: 20180530
  2. DOPADEX SR [Concomitant]
     Indication: PARKINSON^S DISEASE
     Route: 048
     Dates: start: 20180510
  3. DOPALEVO [Concomitant]
     Indication: PARKINSON^S DISEASE
     Route: 048
     Dates: start: 20180525, end: 20180530
  4. DUODOPA [Suspect]
     Active Substance: CARBIDOPA\LEVODOPA
     Indication: PARKINSON^S DISEASE
     Dosage: MORNING DOSE (ML): 6.70?CONTINUOUS DOSE (ML): 3.40?EXTRA DOSE (ML): 1.00
     Route: 050
     Dates: start: 20180508, end: 20180525

REACTIONS (3)
  - General physical health deterioration [Recovered/Resolved]
  - Stoma site erythema [Recovered/Resolved]
  - Hypotension [Recovered/Resolved]

NARRATIVE: CASE EVENT DATE: 201805
